FAERS Safety Report 21106145 (Version 1)
Quarter: 2022Q3

REPORT INFORMATION
  Report Type: Spontaneous
  Country: US (occurrence: None)
  Receive Date: 20220720
  Receipt Date: 20220720
  Transmission Date: 20221026
  Serious: Yes (Other)
  Sender: FDA-Public Use
  Company Number: None

PATIENT
  Age: 65 Year
  Sex: Female
  Weight: 55.8 kg

DRUGS (1)
  1. INFLIXIMAB-ABDA [Suspect]
     Active Substance: INFLIXIMAB-ABDA
     Indication: Crohn^s disease
     Dosage: OTHER FREQUENCY : TITRATED;?
     Route: 041
     Dates: start: 20220714, end: 20220714

REACTIONS (8)
  - Back pain [None]
  - Flushing [None]
  - Dyspnoea [None]
  - Chest discomfort [None]
  - Throat tightness [None]
  - Pruritus [None]
  - Nausea [None]
  - Infusion related reaction [None]

NARRATIVE: CASE EVENT DATE: 20220714
